FAERS Safety Report 5695482-1 (Version None)
Quarter: 2008Q2

REPORT INFORMATION
  Report Type: 
  Country: None (occurrence: None)
  Receive Date: 20080404
  Receipt Date: 20080324
  Transmission Date: 20081010
  Serious: Yes (Hospitalization)
  Sender: FDA-Public Use
  Company Number: 2008BI006025

PATIENT
  Age: 58 Year
  Sex: Female

DRUGS (3)
  1. AVONEX [Suspect]
     Indication: MULTIPLE SCLEROSIS
     Dosage: IM
     Route: 030
     Dates: start: 19990201, end: 20010101
  2. CHEMOTHERAPY [Concomitant]
  3. PREDNISONE [Concomitant]

REACTIONS (5)
  - JOINT DISLOCATION [None]
  - KNEE ARTHROPLASTY [None]
  - MULTIPLE SCLEROSIS [None]
  - PYREXIA [None]
  - UPPER LIMB FRACTURE [None]
